FAERS Safety Report 9104014 (Version 4)
Quarter: 2014Q3

REPORT INFORMATION
  Report Type: Spontaneous
  Country: US (occurrence: US)
  Receive Date: 20130219
  Receipt Date: 20140930
  Transmission Date: 20150326
  Serious: Yes (Hospitalization, Other)
  Sender: FDA-Public Use
  Company Number: US-BAYER-2012-086777

PATIENT
  Age: 32 Year
  Sex: Female
  Weight: 52.15 kg

DRUGS (3)
  1. CONCEPT [Concomitant]
  2. DOXYCYCLINE HYCLATE. [Concomitant]
     Active Substance: DOXYCYCLINE HYCLATE
  3. MIRENA [Suspect]
     Active Substance: LEVONORGESTREL
     Indication: CONTRACEPTION
     Dosage: 20 MCG/24HR, CONT
     Route: 015
     Dates: start: 20101222, end: 20120829

REACTIONS (9)
  - Procedural pain [None]
  - Complication of device removal [None]
  - Fear [None]
  - Pain [None]
  - Nervousness [None]
  - Device breakage [None]
  - Injury [None]
  - Uterine perforation [None]
  - Device difficult to use [None]

NARRATIVE: CASE EVENT DATE: 201208
